FAERS Safety Report 15215863 (Version 2)
Quarter: 2018Q3

REPORT INFORMATION
  Report Type: Report from Study
  Country: GB (occurrence: GB)
  Receive Date: 20180730
  Receipt Date: 20180813
  Transmission Date: 20181010
  Serious: Yes (Hospitalization, Other)
  Sender: FDA-Public Use
  Company Number: GB-ROCHE-2162051

PATIENT
  Sex: Female

DRUGS (2)
  1. BLOOD THINNER (UNK INGREDIENTS) [Concomitant]
  2. ROACTEMRA [Suspect]
     Active Substance: TOCILIZUMAB
     Indication: RHEUMATOID ARTHRITIS
     Route: 058
     Dates: start: 20180619

REACTIONS (4)
  - Infection [Unknown]
  - Appendicitis [Unknown]
  - Pain [Unknown]
  - Enteritis infectious [Unknown]
